FAERS Safety Report 17835223 (Version 6)
Quarter: 2022Q3

REPORT INFORMATION
  Report Type: Report from Study
  Country: CN (occurrence: None)
  Receive Date: 20200528
  Receipt Date: 20220826
  Transmission Date: 20221026
  Serious: Yes (Hospitalization)
  Sender: FDA-Public Use
  Company Number: CN-ROCHE-2099400

PATIENT
  Age: 55 Year
  Sex: Female
  Weight: 53 kg

DRUGS (8)
  1. METHOTREXATE [Suspect]
     Active Substance: METHOTREXATE
     Indication: Rheumatoid arthritis
     Dosage: DATE OF MOST RECENT DOSE PRIOR TO SAE (SERIOUS ADVERSE EVENT) ONSET: 23/APR/2018
     Route: 048
     Dates: start: 20180201
  2. TOCILIZUMAB [Suspect]
     Active Substance: TOCILIZUMAB
     Indication: Rheumatoid arthritis
     Dosage: DATE OF MOST RECENT DOSE OF BLINDED TOCILIZUMAB PRIOR TO SAE (SERIOUS ADVERSE EVENT) ONSET: 23/APR/2
     Route: 058
     Dates: start: 20180129
  3. LIU SHEN WAN [Concomitant]
     Dates: start: 20180428, end: 20180516
  4. VOLTAREN [Concomitant]
     Active Substance: DICLOFENAC SODIUM
     Dates: start: 20170928
  5. BISOPROLOL FUMARATE [Concomitant]
     Active Substance: BISOPROLOL FUMARATE
     Dates: start: 201710
  6. FOLIC ACID [Concomitant]
     Active Substance: FOLIC ACID
     Dosage: REDUCE THE SIDE EFFECTS OF MTX
     Dates: start: 20170717
  7. NIFURATEL [Concomitant]
     Active Substance: NIFURATEL
     Indication: Vaginal infection
     Dates: start: 20180321, end: 20180327
  8. PREDNISONE [Concomitant]
     Active Substance: PREDNISONE
     Route: 048
     Dates: start: 201804, end: 201805

REACTIONS (1)
  - Interstitial lung disease [Recovered/Resolved]

NARRATIVE: CASE EVENT DATE: 20180425
